FAERS Safety Report 8379624-5 (Version None)
Quarter: 2012Q1

REPORT INFORMATION
  Report Type: 
  Country: None (occurrence: None)
  Receive Date: 20120323
  Receipt Date: 20110325
  Transmission Date: 20120608
  Serious: Yes (Other)
  Sender: FDA-Public Use
  Company Number: 163-21880-11033190

PATIENT
  Age: 77 Year
  Sex: Male
  Weight: 73.5 kg

DRUGS (1)
  1. REVLIMID [Suspect]
     Indication: MULTIPLE MYELOMA
     Dosage: 25 MG, DAILY X 21 DAYS, QHS, PO
     Route: 048
     Dates: start: 20110223

REACTIONS (4)
  - CHEST DISCOMFORT [None]
  - ARTHRALGIA [None]
  - FATIGUE [None]
  - BLOOD PRESSURE DECREASED [None]
